FAERS Safety Report 17826340 (Version 6)
Quarter: 2022Q3

REPORT INFORMATION
  Report Type: Report from Study
  Country: CN (occurrence: CN)
  Receive Date: 20200527
  Receipt Date: 20220705
  Transmission Date: 20221027
  Serious: Yes (Hospitalization)
  Sender: FDA-Public Use
  Company Number: CN-BRISTOL-MYERS SQUIBB COMPANY-BMS-2020-039474

PATIENT
  Age: 55 Year
  Sex: Male
  Weight: 82 kg

DRUGS (12)
  1. IPILIMUMAB [Suspect]
     Active Substance: IPILIMUMAB
     Indication: Renal cell carcinoma
     Route: 042
     Dates: start: 20190822
  2. METOPROLOL TARTRATE [Concomitant]
     Active Substance: METOPROLOL TARTRATE
     Indication: Product used for unknown indication
     Dosage: 1 DOSAGE FORM- 1 UNIT NOS, ONGOING
     Route: 048
     Dates: start: 2004
  3. TELMISARTAN [Concomitant]
     Active Substance: TELMISARTAN
     Indication: Product used for unknown indication
     Dosage: 1 DOSAGE FORM- 1 UNIT NOS, ONGOING
     Route: 048
     Dates: start: 2004
  4. METFORMIN [Concomitant]
     Active Substance: METFORMIN HYDROCHLORIDE
     Indication: Product used for unknown indication
     Dosage: 1 DOSAGE FORM- 3UNITS NOS, ONGOING
     Route: 048
     Dates: start: 2016
  5. COMPOUND AZINTAMIDE ENTERIC-COATED TABLETS [Concomitant]
     Indication: Product used for unknown indication
     Dosage: 1 DOSAGE FORM= 6 UNITS NOS, ONGOING
     Route: 048
     Dates: start: 20200119
  6. GLIMEPIRIDE [Concomitant]
     Active Substance: GLIMEPIRIDE
     Indication: Product used for unknown indication
     Dosage: ONGOING
     Route: 048
     Dates: start: 20200119
  7. ACARBOSE [Concomitant]
     Active Substance: ACARBOSE
     Indication: Product used for unknown indication
     Dosage: ONGOING
     Route: 048
     Dates: start: 20200119
  8. ACARBOSE [Concomitant]
     Active Substance: ACARBOSE
     Route: 048
     Dates: start: 201612
  9. INSULIN DETEMIR [Concomitant]
     Active Substance: INSULIN DETEMIR
     Indication: Product used for unknown indication
     Dosage: 1 DOSAGE FORM= 10 UNITS NOS, ONGOING
     Route: 058
     Dates: start: 20200123
  10. INSULIN DETEMIR [Concomitant]
     Active Substance: INSULIN DETEMIR
     Dosage: 1 DOSAGE FORM= 8 UNITS NOS, ONGOING
     Route: 058
     Dates: start: 20200413
  11. LINAGLIPTIN TABLETS [Concomitant]
     Indication: Product used for unknown indication
     Dosage: ONGOING
     Route: 048
     Dates: start: 20200413
  12. REPAGLINIDE [Concomitant]
     Active Substance: REPAGLINIDE
     Indication: Product used for unknown indication
     Dosage: ONGOING
     Route: 048
     Dates: start: 20200413

REACTIONS (2)
  - Weight decreased [Recovering/Resolving]
  - Anaemia [Recovered/Resolved]

NARRATIVE: CASE EVENT DATE: 20200518
